FAERS Safety Report 5848652-3 (Version None)
Quarter: 2008Q3

REPORT INFORMATION
  Report Type: 
  Country: None (occurrence: None)
  Receive Date: 20080818
  Receipt Date: 20080813
  Transmission Date: 20090109
  Serious: Yes (Death, Hospitalization)
  Sender: FDA-Public Use
  Company Number: US-SANOFI-SYNTHELABO-F01200701637

PATIENT
  Sex: Female

DRUGS (22)
  1. VITAMINS NOS [Concomitant]
     Dosage: UNK
  2. GLUCOSAMINE SULFATE/ CHONDROITIN [Concomitant]
     Dosage: UNK
     Dates: start: 20030819, end: 20071112
  3. YUCCA [Concomitant]
     Dosage: UNK
     Dates: start: 20031014, end: 20071112
  4. BENADRYL [Concomitant]
     Dosage: UNK
     Dates: start: 20070810, end: 20071112
  5. TIMOLOL MALEATE [Concomitant]
     Dosage: UNK
     Dates: start: 20070524, end: 20071117
  6. XALATAN [Concomitant]
     Dosage: UNK
     Dates: start: 20070524, end: 20071112
  7. LOFIBRA [Concomitant]
     Dosage: UNK
     Dates: start: 20070127, end: 20071112
  8. CAPTOPRIL [Concomitant]
     Dosage: UNK
     Dates: start: 20070923, end: 20071112
  9. FERROUS SULFATE TAB [Concomitant]
     Dosage: UNK
     Dates: start: 20070924, end: 20071112
  10. GLYBURIDE [Concomitant]
     Dosage: UNK
     Dates: start: 20070827, end: 20071112
  11. ACIPHEX [Concomitant]
     Dosage: UNK
  12. AVANDIA [Concomitant]
     Dosage: UNK
     Dates: start: 20070912, end: 20071112
  13. TYLENOL (CAPLET) [Concomitant]
     Dosage: UNK
     Dates: start: 20070912, end: 20071112
  14. FISH OIL [Concomitant]
     Dosage: UNK
     Dates: start: 20070924, end: 20071112
  15. LORTAB [Concomitant]
     Dosage: UNK
  16. PROCHLORPERAZINE MALEATE [Concomitant]
     Dosage: UNK
     Dates: start: 20071022, end: 20071112
  17. BYETTA [Concomitant]
     Dosage: UNK
     Dates: start: 20071023, end: 20071112
  18. LASIX [Concomitant]
     Dosage: UNK
     Dates: start: 20070821, end: 20071112
  19. BEVACIZUMAB [Suspect]
     Route: 042
     Dates: start: 20071029, end: 20071029
  20. PHILLIPS' MOM [Concomitant]
     Dosage: UNK
     Dates: start: 20071022, end: 20071112
  21. CAPECITABINE [Suspect]
     Dosage: BID FOR 14 DAYS
     Route: 048
     Dates: start: 20071029, end: 20071112
  22. OXALIPLATIN [Suspect]
     Indication: COLORECTAL CANCER METASTATIC
     Route: 042
     Dates: start: 20071029, end: 20071029

REACTIONS (2)
  - GASTROINTESTINAL HAEMORRHAGE [None]
  - SEPSIS [None]
